FAERS Safety Report 9772425 (Version 1)
Quarter: 2013Q4

REPORT INFORMATION
  Report Type: Spontaneous
  Country: US (occurrence: US)
  Receive Date: 20131219
  Receipt Date: 20131219
  Transmission Date: 20140711
  Serious: No
  Sender: FDA-Public Use
  Company Number: US-BAYER-2013-152826

PATIENT
  Age: 63 Year
  Sex: Female

DRUGS (2)
  1. GADAVIST [Suspect]
     Indication: NUCLEAR MAGNETIC RESONANCE IMAGING
     Dosage: UNK UNK, ONCE
  2. GADAVIST [Suspect]
     Indication: CARDIAC IMAGING PROCEDURE

REACTIONS (1)
  - Drug ineffective for unapproved indication [None]
